FAERS Safety Report 12219483 (Version 1)
Quarter: 2016Q1

REPORT INFORMATION
  Report Type: Spontaneous
  Country: JP (occurrence: JP)
  Receive Date: 20160329
  Receipt Date: 20160329
  Transmission Date: 20160526
  Serious: Yes (Death, Hospitalization, Other)
  Sender: FDA-Public Use
  Company Number: JP-TAKEDA-2016TUS005370

PATIENT
  Age: 25 Year
  Sex: Female
  Weight: 100 kg

DRUGS (1)
  1. COLCHICINE. [Suspect]
     Active Substance: COLCHICINE
     Indication: BEHCET^S SYNDROME
     Dosage: UNK
     Route: 048

REACTIONS (4)
  - Off label use [Recovered/Resolved]
  - Multiple organ dysfunction syndrome [Fatal]
  - Suicide attempt [Unknown]
  - Intentional overdose [Recovered/Resolved]
